FAERS Safety Report 15726120 (Version 1)
Quarter: 2018Q4

REPORT INFORMATION
  Report Type: Spontaneous
  Country: US (occurrence: US)
  Receive Date: 20181216
  Receipt Date: 20181216
  Transmission Date: 20190205
  Serious: No
  Sender: FDA-Public Use
  Company Number: US-SUPERNUS PHARMACEUTICALS, INC.-2017SUP00307

PATIENT
  Sex: Female
  Weight: 81.63 kg

DRUGS (8)
  1. TROKENDI XR [Suspect]
     Active Substance: TOPIRAMATE
     Indication: MIGRAINE
     Dosage: 50 MG, 1X/DAY
     Route: 048
     Dates: start: 20171021, end: 20171103
  2. TROKENDI XR [Suspect]
     Active Substance: TOPIRAMATE
     Indication: MIGRAINE
     Dosage: UNK
     Dates: start: 20171012, end: 20171020
  3. BOTOX [Concomitant]
     Active Substance: ONABOTULINUMTOXINA
  4. ZEMBRACE SYMTOUCH [Concomitant]
     Active Substance: SUMATRIPTAN SUCCINATE
     Dosage: UNK, AS NEEDED
     Route: 042
     Dates: start: 2016
  5. B-12 VITAMIN [Concomitant]
     Dosage: UNK, 1X/DAY
  6. UNSPECIFIED BLOOD PRESSURE MEDICATION [Concomitant]
     Active Substance: UNSPECIFIED INGREDIENT
     Dosage: UNK
     Dates: start: 2015
  7. OMEGA FISH OIL [Concomitant]
     Active Substance: FISH OIL\OMEGA-3 FATTY ACIDS
  8. VITAMIN C [Concomitant]
     Active Substance: ASCORBIC ACID

REACTIONS (4)
  - Paraesthesia [Not Recovered/Not Resolved]
  - Memory impairment [Not Recovered/Not Resolved]
  - Feeling abnormal [Not Recovered/Not Resolved]
  - Depression [Not Recovered/Not Resolved]
